FAERS Safety Report 19921105 (Version 1)
Quarter: 2021Q4

REPORT INFORMATION
  Report Type: Spontaneous
  Country: CN (occurrence: CN)
  Receive Date: 20211005
  Receipt Date: 20211005
  Transmission Date: 20220303
  Serious: Yes (Other)
  Sender: FDA-Public Use
  Company Number: CN-BAXTER-2021BAX023826

PATIENT
  Age: 53 Year
  Sex: Female
  Weight: 70 kg

DRUGS (9)
  1. CYCLOPHOSPHAMIDE [Suspect]
     Active Substance: CYCLOPHOSPHAMIDE
     Indication: Breast cancer female
     Dosage: ENDOXAN 1G + 0.9% SODIUM CHLORIDE 100ML
     Route: 041
     Dates: start: 20190729, end: 20190729
  2. CYCLOPHOSPHAMIDE [Suspect]
     Active Substance: CYCLOPHOSPHAMIDE
     Dosage: DOSE RE-INTRODUCED
     Route: 041
  3. DOCETAXEL [Suspect]
     Active Substance: DOCETAXEL
     Indication: Breast cancer female
     Dosage: DOCETAXEL 120 MG + 0.9% SODIUM CHLORIDE 250ML
     Route: 041
     Dates: start: 20190729, end: 20190729
  4. DOCETAXEL [Suspect]
     Active Substance: DOCETAXEL
     Dosage: DOSE RE-INTRODUCED
     Route: 041
  5. ADO-TRASTUZUMAB EMTANSINE [Suspect]
     Active Substance: ADO-TRASTUZUMAB EMTANSINE
     Indication: Breast cancer female
     Dosage: TRASTUZUMAB EMTANSINE 560 MG + 0.9% SODIUM CHLORIDE 250ML
     Route: 041
     Dates: start: 20190729, end: 20190729
  6. ADO-TRASTUZUMAB EMTANSINE [Suspect]
     Active Substance: ADO-TRASTUZUMAB EMTANSINE
     Dosage: DOSE RE-INTRODUCED
     Route: 041
  7. SODIUM CHLORIDE [Suspect]
     Active Substance: SODIUM CHLORIDE
     Indication: Medication dilution
     Dosage: ENDOXAN 1G + 0.9% SODIUM CHLORIDE 100ML
     Route: 041
     Dates: start: 20190729, end: 20190729
  8. SODIUM CHLORIDE [Suspect]
     Active Substance: SODIUM CHLORIDE
     Dosage: DOCETAXEL 120 MG + 0.9% SODIUM CHLORIDE 250ML
     Route: 041
     Dates: start: 20190729, end: 20190729
  9. SODIUM CHLORIDE [Suspect]
     Active Substance: SODIUM CHLORIDE
     Dosage: TRASTUZUMAB EMTANSINE 560 MG + 0.9% SODIUM CHLORIDE 250ML
     Route: 041
     Dates: start: 20190729, end: 20190729

REACTIONS (1)
  - Agranulocytosis [Recovered/Resolved]

NARRATIVE: CASE EVENT DATE: 20190805
